FAERS Safety Report 8073213-8 (Version None)
Quarter: 2012Q1

REPORT INFORMATION
  Report Type: 
  Country: None (occurrence: None)
  Receive Date: 20120126
  Receipt Date: 20120111
  Transmission Date: 20120608
  Serious: Yes (Hospitalization)
  Sender: FDA-Public Use
  Company Number: PHHO2012BE001066

PATIENT
  Sex: Female
  Weight: 62 kg

DRUGS (8)
  1. GLEEVEC [Suspect]
     Dosage: 400 MG, QD
     Route: 048
     Dates: start: 20111013, end: 20120112
  2. TRACLEER [Concomitant]
     Indication: PULMONARY ARTERIAL HYPERTENSION
     Dosage: 125 MG, BID
  3. MARCOUMAR [Concomitant]
     Indication: PULMONARY ARTERIAL HYPERTENSION
     Dosage: UNK
  4. REVALID [Concomitant]
     Indication: PULMONARY ARTERIAL HYPERTENSION
     Dosage: 20 MG, TID
  5. LANITOP [Concomitant]
     Dosage: 0.1 MG, UNK
  6. ELTHYRONE [Concomitant]
     Indication: HYPOTHYROIDISM
     Dosage: 100 MG, UNK
  7. BUMETANIDE [Concomitant]
     Indication: PULMONARY ARTERIAL HYPERTENSION
     Dosage: 2 MG, UNK
  8. ALDACTONE [Concomitant]
     Indication: PULMONARY ARTERIAL HYPERTENSION
     Dosage: 50 MG, UNK

REACTIONS (2)
  - MESENTERIC PANNICULITIS [None]
  - GASTROENTERITIS [None]
